FAERS Safety Report 7745546-3 (Version None)
Quarter: 2011Q3

REPORT INFORMATION
  Report Type: 
  Country: None (occurrence: None)
  Receive Date: 20110908
  Receipt Date: 20110823
  Transmission Date: 20111222
  Serious: Yes (Other)
  Sender: FDA-Public Use
  Company Number: AUR-APL-2011-04843

PATIENT
  Age: 32 Year
  Sex: Female
  Weight: 80.3 kg

DRUGS (8)
  1. ELETRIPTAN (ELETRIPTAN) [Concomitant]
  2. LANSOPRAZOLE [Concomitant]
  3. DICLOFENAC SODIUM [Concomitant]
  4. TOPIRAMATE [Suspect]
     Indication: PRODUCT USED FOR UNKNOWN INDICATION
  5. CO-CODAMOL (PANADEINE CO) [Concomitant]
  6. YASMIN [Concomitant]
  7. GABAPENTIN [Concomitant]
  8. PREGABALIN [Concomitant]

REACTIONS (4)
  - ANGER [None]
  - AMNESIA [None]
  - CONSTIPATION [None]
  - VISUAL IMPAIRMENT [None]
